FAERS Safety Report 14805926 (Version 1)
Quarter: 2018Q1

REPORT INFORMATION
  Report Type: Spontaneous
  Country: US (occurrence: US)
  Receive Date: 20180331
  Receipt Date: 20180331
  Transmission Date: 20180509
  Serious: Yes (Disabling)
  Sender: FDA-Public Use
  Company Number: None

PATIENT
  Age: 27 Year
  Sex: Male
  Weight: 74.25 kg

DRUGS (1)
  1. FLUOXETINE [Suspect]
     Active Substance: FLUOXETINE HYDROCHLORIDE
     Indication: OBSESSIVE-COMPULSIVE DISORDER
     Dates: start: 20171225, end: 20180120

REACTIONS (10)
  - Disturbance in attention [None]
  - Emotional disorder [None]
  - Sexual dysfunction [None]
  - Withdrawal syndrome [None]
  - Insomnia [None]
  - Fatigue [None]
  - Memory impairment [None]
  - Hypersomnia [None]
  - Dyspnoea [None]
  - Gastrointestinal disorder [None]

NARRATIVE: CASE EVENT DATE: 20180127
